FAERS Safety Report 9196867 (Version 2)
Quarter: 2013Q4

REPORT INFORMATION
  Report Type: Spontaneous
  Country: US (occurrence: US)
  Receive Date: 20130328
  Receipt Date: 20131202
  Transmission Date: 20140711
  Serious: Yes (Other)
  Sender: FDA-Public Use
  Company Number: US-BAYER-2013-038449

PATIENT
  Age: 32 Year
  Sex: Female

DRUGS (8)
  1. YAZ [Suspect]
  2. YASMIN [Suspect]
  3. OCELLA [Suspect]
  4. ONDANSETRON [Concomitant]
     Dosage: 4 MG, UNK
     Dates: start: 20091216, end: 20100218
  5. LORAZEPAM [Concomitant]
     Dosage: 0.5 MG, UNK
     Dates: start: 20100123
  6. DRONABINOL [Concomitant]
     Dosage: 2.5 MG, UNK
     Dates: start: 20091216
  7. CYMBALTA [Concomitant]
     Dosage: 60 MG, UNK
     Dates: start: 20091222, end: 20100213
  8. DEXAMETHASONE [Concomitant]
     Dosage: 4 MG, UNK
     Dates: start: 20100108

REACTIONS (5)
  - Gallbladder injury [None]
  - Injury [None]
  - Pain [None]
  - Pain [None]
  - Cholecystitis chronic [None]
